FAERS Safety Report 4537864-7 (Version None)
Quarter: 2004Q4

REPORT INFORMATION
  Report Type: 
  Country: None (occurrence: None)
  Receive Date: 20041224
  Receipt Date: 20041130
  Transmission Date: 20050328
  Serious: Yes (Hospitalization)
  Sender: FDA-Public Use
  Company Number: JP-MERCK-0412USA00276

PATIENT
  Age: 77 Year
  Sex: Female
  Weight: 48 kg

DRUGS (14)
  1. FOSAMAX [Suspect]
     Indication: OSTEOPOROSIS
     Route: 048
     Dates: start: 20020801, end: 20020801
  2. FOSAMAX [Suspect]
     Route: 048
     Dates: start: 20020901, end: 20031201
  3. FOSAMAX [Suspect]
     Route: 048
     Dates: start: 20040401, end: 20040501
  4. FOSAMAX [Suspect]
     Indication: COMPRESSION FRACTURE
     Route: 048
     Dates: start: 20020801, end: 20020801
  5. FOSAMAX [Suspect]
     Route: 048
     Dates: start: 20020901, end: 20031201
  6. FOSAMAX [Suspect]
     Route: 048
     Dates: start: 20040401, end: 20040501
  7. DEPAS [Concomitant]
     Indication: ANXIETY DISORDER
     Route: 048
  8. WARFARIN POTASSIUM [Concomitant]
     Indication: ANGINA PECTORIS
     Route: 048
  9. ALFAROL [Concomitant]
     Indication: OSTEOPOROSIS
     Route: 048
  10. OSTEN [Concomitant]
     Indication: OSTEOPOROSIS
     Route: 048
  11. SELBEX [Concomitant]
     Indication: PROPHYLAXIS
     Route: 048
  12. THEO-DUR [Concomitant]
     Indication: ASTHMA
     Route: 048
  13. RYTHMODAN [Concomitant]
     Indication: ARRHYTHMIA
     Route: 048
  14. NICERGOLINE [Concomitant]
     Indication: CEREBROVASCULAR DISORDER
     Route: 048

REACTIONS (4)
  - ADVERSE EVENT [None]
  - CATARACT [None]
  - IRIDOCYCLITIS [None]
  - VISUAL ACUITY REDUCED [None]
